FAERS Safety Report 4308335-8 (Version None)
Quarter: 2004Q1

REPORT INFORMATION
  Report Type: 
  Country: None (occurrence: None)
  Receive Date: 20040301
  Receipt Date: 20040224
  Transmission Date: 20041129
  Serious: Yes (Hospitalization)
  Sender: FDA-Public Use
  Company Number: 200410594EU

PATIENT
  Age: 49 Year
  Sex: Male

DRUGS (9)
  1. ARAVA [Suspect]
     Indication: ANKYLOSING SPONDYLITIS
     Route: 048
     Dates: start: 20030815, end: 20031125
  2. REMICADE [Suspect]
     Indication: ANKYLOSING SPONDYLITIS
     Route: 042
     Dates: start: 20030815, end: 20030930
  3. AMITRID MITE [Concomitant]
     Indication: CARDIAC DISORDER
     Route: 048
     Dates: end: 20031201
  4. SOTACOR [Concomitant]
     Indication: CARDIAC DISORDER
     Route: 048
     Dates: end: 20031201
  5. PREDNISOLONE [Concomitant]
     Indication: ANKYLOSING SPONDYLITIS
     Route: 048
  6. OXIKLORIN [Concomitant]
     Indication: ANKYLOSING SPONDYLITIS
     Route: 048
     Dates: end: 20031201
  7. PERSANTIN [Concomitant]
     Indication: THROMBOSIS PROPHYLAXIS
     Route: 048
  8. RIVATRIL [Concomitant]
     Route: 048
  9. VIOXX [Concomitant]
     Indication: ANKYLOSING SPONDYLITIS
     Route: 048
     Dates: end: 20031101

REACTIONS (1)
  - HEPATITIS [None]
